FAERS Safety Report 5818083-0 (Version None)
Quarter: 2008Q3

REPORT INFORMATION
  Report Type: 
  Country: None (occurrence: None)
  Receive Date: 20080722
  Receipt Date: 20070917
  Transmission Date: 20090109
  Serious: No
  Sender: FDA-Public Use
  Company Number: US-BAYER-US-2007-034946

PATIENT
  Age: 37 Year
  Sex: Female
  Weight: 63 kg

DRUGS (4)
  1. MAGNEVIST [Suspect]
     Indication: NUCLEAR MAGNETIC RESONANCE IMAGING
     Dosage: TOTAL DAILY DOSE: 13 ML  UNIT DOSE: 20 ML
     Route: 042
     Dates: start: 20070904, end: 20070904
  2. ZOLOFT [Concomitant]
  3. TEGRETOL [Concomitant]
  4. TOPAMAX [Concomitant]

REACTIONS (1)
  - INJECTION SITE PAIN [None]
